FAERS Safety Report 12301175 (Version 1)
Quarter: 2016Q2

REPORT INFORMATION
  Report Type: Spontaneous
  Country: BR (occurrence: BR)
  Receive Date: 20160425
  Receipt Date: 20160425
  Transmission Date: 20160815
  Serious: Yes (Other)
  Sender: FDA-Public Use
  Company Number: BR-JNJFOC-20160415460

PATIENT
  Sex: Female

DRUGS (2)
  1. LEVAQUIN [Suspect]
     Active Substance: LEVOFLOXACIN
     Indication: SINUSITIS
     Route: 048
     Dates: start: 20160413
  2. LEVAQUIN [Suspect]
     Active Substance: LEVOFLOXACIN
     Indication: LUNG INFILTRATION
     Route: 048
     Dates: start: 20160413

REACTIONS (9)
  - Back pain [Unknown]
  - Abasia [Unknown]
  - Insomnia [Unknown]
  - Burning sensation [Unknown]
  - Myalgia [Unknown]
  - Muscle rigidity [Unknown]
  - Arthralgia [Unknown]
  - Eye pain [Unknown]
  - Dry skin [Unknown]

NARRATIVE: CASE EVENT DATE: 20160413
